FAERS Safety Report 20570043 (Version 1)
Quarter: 2022Q1

REPORT INFORMATION
  Report Type: Spontaneous
  Country: FR (occurrence: FR)
  Receive Date: 20220309
  Receipt Date: 20220309
  Transmission Date: 20220424
  Serious: Yes (Death)
  Sender: FDA-Public Use
  Company Number: FR-AFSSAPS-BR20220292

PATIENT
  Age: 62 Year
  Sex: Male

DRUGS (1)
  1. MORPHINE [Suspect]
     Active Substance: MORPHINE
     Indication: Cancer pain
     Dosage: 4 MILLILITER, FLOW RATE OF 4 ML/H
     Route: 042
     Dates: start: 20211018, end: 20211018

REACTIONS (4)
  - Respiratory depression [Fatal]
  - Device programming error [Fatal]
  - Product administration error [Fatal]
  - Accidental overdose [Fatal]

NARRATIVE: CASE EVENT DATE: 20211018
